FAERS Safety Report 10374222 (Version 2)
Quarter: 2014Q3

REPORT INFORMATION
  Report Type: Report from Study
  Country: US (occurrence: US)
  Receive Date: 20140811
  Receipt Date: 20140905
  Transmission Date: 20150326
  Serious: Yes (Hospitalization)
  Sender: FDA-Public Use
  Company Number: US-BIOGENIDEC-2014BI076380

PATIENT
  Age: 59 Year
  Sex: Female
  Weight: 97 kg

DRUGS (21)
  1. FERROUS SULFATE [Concomitant]
     Active Substance: FERROUS SULFATE\FERROUS SULFATE, DRIED
     Route: 048
  2. FISH OIL [Concomitant]
     Active Substance: FISH OIL
     Route: 048
  3. ONDANSETRON [Concomitant]
     Active Substance: ONDANSETRON
     Route: 048
  4. CYCLOBENZAPRINE [Concomitant]
     Active Substance: CYCLOBENZAPRINE
     Route: 048
  5. EFFEXOR XR [Concomitant]
     Active Substance: VENLAFAXINE HYDROCHLORIDE
     Route: 048
  6. ATENOLOL. [Concomitant]
     Active Substance: ATENOLOL
     Route: 048
  7. POTASSIUM [Concomitant]
     Active Substance: POTASSIUM
     Route: 048
  8. ZOMIG [Concomitant]
     Active Substance: ZOLMITRIPTAN
     Route: 048
  9. CALCIUM WITH VITAMIN D3 [Concomitant]
     Active Substance: CALCIUM CARBONATE\CHOLECALCIFEROL
  10. FLAXSEED [Concomitant]
     Active Substance: FLAX SEED
     Route: 048
  11. CELEBREX [Concomitant]
     Active Substance: CELECOXIB
     Route: 048
  12. VITAMIN B COMPLEX [Concomitant]
     Active Substance: CYANOCOBALAMIN\DEXPANTHENOL\NIACINAMIDE\PYRIDOXINE HYDROCHLORIDE\RIBOFLAVIN 5^-PHOSPHATE SODIUM\THIAMINE HYDROCHLORIDE\VITAMIN B COMPLEX
     Route: 048
  13. WELLBUTRIN SR [Concomitant]
     Active Substance: BUPROPION HYDROCHLORIDE
     Route: 048
  14. AMANTADINE [Concomitant]
     Active Substance: AMANTADINE
     Route: 048
  15. CINNAMON. [Concomitant]
     Active Substance: CINNAMON
     Route: 048
  16. LASIX [Concomitant]
     Active Substance: FUROSEMIDE
     Route: 048
  17. TYSABRI [Suspect]
     Active Substance: NATALIZUMAB
     Indication: MULTIPLE SCLEROSIS
     Route: 042
     Dates: start: 20110119
  18. ACETAMINOPHEN/OXYCODONE [Concomitant]
     Active Substance: ACETAMINOPHEN\OXYCODONE HYDROCHLORIDE
     Route: 048
  19. CENTRUM [Concomitant]
     Active Substance: VITAMINS
     Route: 048
  20. NEXIUM [Concomitant]
     Active Substance: ESOMEPRAZOLE MAGNESIUM
     Route: 048
  21. VITAMIN C [Concomitant]
     Active Substance: ASCORBIC ACID
     Route: 048

REACTIONS (11)
  - Irritability [Recovered/Resolved with Sequelae]
  - Confusional state [Not Recovered/Not Resolved]
  - Cognitive disorder [Not Recovered/Not Resolved]
  - Poor venous access [Recovered/Resolved with Sequelae]
  - Emotional disorder [Recovered/Resolved with Sequelae]
  - Speech disorder [Recovered/Resolved]
  - Headache [Recovered/Resolved]
  - Embolic stroke [Unknown]
  - Memory impairment [Not Recovered/Not Resolved]
  - Diplopia [Recovered/Resolved]
  - Depressed mood [Recovered/Resolved with Sequelae]

NARRATIVE: CASE EVENT DATE: 20110119
